FAERS Safety Report 12527267 (Version 12)
Quarter: 2022Q2

REPORT INFORMATION
  Report Type: Report from Study
  Country: JP (occurrence: JP)
  Receive Date: 20160705
  Receipt Date: 20220531
  Transmission Date: 20220720
  Serious: Yes (Hospitalization, Disabling, Other)
  Sender: FDA-Public Use
  Company Number: JP-VIIVHC-JP2016JPN092059AA

PATIENT

DRUGS (18)
  1. DOLUTEGRAVIR [Suspect]
     Active Substance: DOLUTEGRAVIR
     Indication: HIV infection
     Dosage: 100 MG, 1D
     Route: 048
     Dates: start: 20150428, end: 20151201
  2. DOLUTEGRAVIR [Suspect]
     Active Substance: DOLUTEGRAVIR
     Dosage: 50 MG, 1D
     Route: 048
     Dates: start: 20151202
  3. TRUVADA [Suspect]
     Active Substance: EMTRICITABINE\TENOFOVIR DISOPROXIL FUMARATE
     Indication: HIV infection
     Dosage: 1 DF, 1D
     Route: 048
     Dates: start: 20150428, end: 20170910
  4. DESCOVY [Suspect]
     Active Substance: EMTRICITABINE\TENOFOVIR ALAFENAMIDE FUMARATE
     Indication: HIV infection
     Dosage: 1 DF, 1D
     Route: 048
     Dates: start: 20170911
  5. ISCOTIN [Concomitant]
     Active Substance: ISONIAZID
     Indication: Disseminated tuberculosis
     Dosage: 300 MG, QD
     Dates: start: 20150302, end: 20151201
  6. ISCOTIN [Concomitant]
     Active Substance: ISONIAZID
     Indication: Tuberculoma of central nervous system
  7. PYRIDOXAL [Concomitant]
     Active Substance: PYRIDOXAL
     Indication: Vitamin supplementation
     Dosage: 30 MG, QD
     Dates: start: 20150302, end: 20151201
  8. EBUTOL (JAPAN) [Concomitant]
     Indication: Disseminated tuberculosis
     Dosage: 1000 MG, QD
     Dates: start: 20150302, end: 20151201
  9. EBUTOL (JAPAN) [Concomitant]
     Indication: Tuberculoma of central nervous system
  10. PYRAZINAMIDE [Concomitant]
     Active Substance: PYRAZINAMIDE
     Indication: Disseminated tuberculosis
     Dosage: 1.5 G, QD
     Dates: start: 20150302, end: 20150428
  11. PYRAZINAMIDE [Concomitant]
     Active Substance: PYRAZINAMIDE
     Indication: Tuberculoma of central nervous system
  12. SULFAMETHOXAZOLE\TRIMETHOPRIM [Concomitant]
     Active Substance: SULFAMETHOXAZOLE\TRIMETHOPRIM
     Indication: Antifungal prophylaxis
     Dosage: 1 DF, QD
     Dates: start: 20150420, end: 20161013
  13. FEXOFENADINE HYDROCHLORIDE OD TABLET [Concomitant]
     Indication: Rash
     Dosage: 60 MG, BID
     Dates: start: 20150420
  14. FLUNITRAZEPAM [Concomitant]
     Active Substance: FLUNITRAZEPAM
     Indication: Insomnia
     Dosage: 1 MG, QD
     Dates: start: 20150420, end: 20160628
  15. RIFAMPIN [Concomitant]
     Active Substance: RIFAMPIN
     Indication: Disseminated tuberculosis
     Dosage: 600 MG, QD
     Dates: start: 20150302
  16. RIFAMPIN [Concomitant]
     Active Substance: RIFAMPIN
     Indication: Tuberculoma of central nervous system
  17. FLUNITRAZEPAM [Concomitant]
     Active Substance: FLUNITRAZEPAM
     Dosage: UNK
     Dates: start: 20180222
  18. ACETAMINOPHEN [Concomitant]
     Active Substance: ACETAMINOPHEN
     Indication: Prophylaxis
     Dosage: UNK
     Dates: start: 20210616, end: 2022

REACTIONS (8)
  - Immune reconstitution inflammatory syndrome associated tuberculosis [Recovering/Resolving]
  - Tuberculoma of central nervous system [Recovering/Resolving]
  - Blood triglycerides increased [Not Recovered/Not Resolved]
  - Gamma-glutamyltransferase increased [Recovering/Resolving]
  - Type 2 diabetes mellitus [Not Recovered/Not Resolved]
  - Blood cholesterol increased [Recovering/Resolving]
  - Liver function test increased [Not Recovered/Not Resolved]
  - Syphilis [Not Recovered/Not Resolved]

NARRATIVE: CASE EVENT DATE: 20150511
